FAERS Safety Report 6710439 (Version 4)
Quarter: 2012Q4

REPORT INFORMATION
  Report Type: 
  Country: CA (occurrence: CA)
  Receive Date: 20080725
  Receipt Date: 20121106
  Transmission Date: 20130627
  Serious: No
  Sender: FDA-Public Use
  Company Number: PHHY2008CA14887

PATIENT
  Sex: Male

DRUGS (1)
  1. SANDOSTATIN LAR [Suspect]
     Indication: ACROMEGALY
     Dosage: 10 mg, every 4 weeks
     Route: 030
     Dates: start: 20060420

REACTIONS (9)
  - Depression [Recovering/Resolving]
  - Insulin-like growth factor decreased [Unknown]
  - Back pain [Recovered/Resolved]
  - Tinea pedis [Unknown]
  - Oral herpes [Unknown]
  - Migraine [Unknown]
  - Immune system disorder [Unknown]
  - Stress [Unknown]
  - Fatigue [Recovering/Resolving]
